FAERS Safety Report 7814144-5 (Version None)
Quarter: 2011Q4

REPORT INFORMATION
  Report Type: 
  Country: None (occurrence: None)
  Receive Date: 20111014
  Receipt Date: 20111011
  Transmission Date: 20120403
  Serious: Yes (Death)
  Sender: FDA-Public Use
  Company Number: US-PFIZER INC-2011243374

PATIENT

DRUGS (2)
  1. ZITHROMAX [Suspect]
     Dosage: UNK
  2. DIFLUCAN [Suspect]
     Dosage: UNK

REACTIONS (1)
  - DEATH [None]
